FAERS Safety Report 9185946 (Version 1)
Quarter: 2013Q1

REPORT INFORMATION
  Report Type: Report from Study
  Country: CA (occurrence: CA)
  Receive Date: 20130325
  Receipt Date: 20130325
  Transmission Date: 20140127
  Serious: Yes (Other)
  Sender: FDA-Public Use
  Company Number: CA-ABBOTT-13P-028-1050420-00

PATIENT
  Sex: Female
  Weight: 83.99 kg

DRUGS (1)
  1. HUMIRA [Suspect]
     Indication: PSORIASIS
     Route: 058
     Dates: start: 20090922, end: 20120828

REACTIONS (3)
  - Vaginal discharge [Recovered/Resolved]
  - Vaginal prolapse [Recovered/Resolved]
  - Uterine cancer [Not Recovered/Not Resolved]
